FAERS Safety Report 20762921 (Version 2)
Quarter: 2022Q2

REPORT INFORMATION
  Report Type: Spontaneous
  Country: IT (occurrence: IT)
  Receive Date: 20220428
  Receipt Date: 20220505
  Transmission Date: 20220721
  Serious: Yes (Hospitalization, Other)
  Sender: FDA-Public Use
  Company Number: IT-TEVA-2022-IT-2030139

PATIENT
  Age: 74 Year
  Sex: Male

DRUGS (5)
  1. TACROLIMUS [Suspect]
     Active Substance: TACROLIMUS
     Indication: Immunosuppressant drug therapy
     Route: 065
     Dates: start: 2013
  2. MYCOPHENOLIC ACID [Suspect]
     Active Substance: MYCOPHENOLIC ACID
     Indication: Immunosuppressant drug therapy
     Route: 065
     Dates: start: 2013
  3. ENTECAVIR [Suspect]
     Active Substance: ENTECAVIR
     Indication: Hepatitis B reactivation
     Dosage: .5 MILLIGRAM DAILY;
     Route: 065
     Dates: start: 2019
  4. ENTECAVIR [Suspect]
     Active Substance: ENTECAVIR
     Dosage: .25 MILLIGRAM DAILY;
     Route: 065
     Dates: start: 202004
  5. BASILIXIMAB [Suspect]
     Active Substance: BASILIXIMAB
     Indication: Immunosuppressant drug therapy
     Route: 065
     Dates: start: 2013

REACTIONS (2)
  - Hepatitis B reactivation [Recovered/Resolved]
  - Drug resistance [Unknown]

NARRATIVE: CASE EVENT DATE: 20190101
